FAERS Safety Report 4467656-9 (Version None)
Quarter: 2004Q4

REPORT INFORMATION
  Report Type: 
  Country: None (occurrence: None)
  Receive Date: 20041004
  Receipt Date: 20041004
  Transmission Date: 20050328
  Serious: Yes (Life-Threatening, Hospitalization)
  Sender: FDA-Public Use
  Company Number: None

PATIENT
  Age: 63 Year
  Sex: Male
  Weight: 136.0791 kg

DRUGS (2)
  1. VIOXX [Suspect]
     Indication: OSTEOARTHRITIS
     Dosage: DAILY
     Dates: start: 20010301, end: 20030202
  2. CELEBREX [Suspect]
     Dates: start: 20010301, end: 20030202

REACTIONS (1)
  - MYOCARDIAL INFARCTION [None]
